FAERS Safety Report 15472516 (Version 1)
Quarter: 2018Q4

REPORT INFORMATION
  Report Type: Spontaneous
  Country: US (occurrence: US)
  Receive Date: 20181008
  Receipt Date: 20181008
  Transmission Date: 20190205
  Serious: Yes (Other)
  Sender: FDA-Public Use
  Company Number: US-AUROBINDO-AUR-APL-2018-048157

PATIENT
  Age: 41 Year
  Sex: Male

DRUGS (16)
  1. LEVETIRACETAM. [Concomitant]
     Active Substance: LEVETIRACETAM
     Indication: STATUS EPILEPTICUS
  2. NITRAZEPAM [Concomitant]
     Active Substance: NITRAZEPAM
     Indication: STATUS EPILEPTICUS
  3. VALPROIC ACID. [Concomitant]
     Active Substance: VALPROIC ACID
     Indication: STATUS EPILEPTICUS
  4. PHENYTOIN. [Concomitant]
     Active Substance: PHENYTOIN
     Indication: STATUS EPILEPTICUS
  5. GABAPENTIN. [Concomitant]
     Active Substance: GABAPENTIN
     Indication: STATUS EPILEPTICUS
  6. KETAMINE [Concomitant]
     Active Substance: KETAMINE
     Dosage: GOAL OF UP-TITRATING BY 0.5 MG/KG/HOUR
  7. LACOSAMIDE. [Concomitant]
     Active Substance: LACOSAMIDE
     Indication: STATUS EPILEPTICUS
  8. MIDAZOLAM [Concomitant]
     Active Substance: MIDAZOLAM HYDROCHLORIDE
     Indication: STATUS EPILEPTICUS
     Dosage: ()
  9. TOPIRAMATE. [Suspect]
     Active Substance: TOPIRAMATE
     Indication: STATUS EPILEPTICUS
     Dosage: ()
     Route: 065
  10. KETAMINE [Concomitant]
     Active Substance: KETAMINE
     Dosage: BOLUS
  11. KETAMINE [Concomitant]
     Active Substance: KETAMINE
     Dosage: UP-TITRATION
  12. SULTIAME [Concomitant]
     Active Substance: SULTHIAME
     Indication: STATUS EPILEPTICUS
  13. CLOBAZAM. [Concomitant]
     Active Substance: CLOBAZAM
     Indication: STATUS EPILEPTICUS
  14. PHENOBARBITONE                     /00023201/ [Concomitant]
     Active Substance: PHENOBARBITAL
     Indication: STATUS EPILEPTICUS
  15. KETAMINE [Concomitant]
     Active Substance: KETAMINE
     Indication: STATUS EPILEPTICUS
     Dosage: MAINTENANCE INFUSION
  16. CLONAZEPAM. [Concomitant]
     Active Substance: CLONAZEPAM
     Indication: STATUS EPILEPTICUS

REACTIONS (1)
  - Renal tubular acidosis [Unknown]
